FAERS Safety Report 5242965-4 (Version None)
Quarter: 2007Q1

REPORT INFORMATION
  Report Type: 
  Country: None (occurrence: None)
  Receive Date: 20070215
  Receipt Date: 20070207
  Transmission Date: 20070707
  Serious: Yes (Other)
  Sender: FDA-Public Use
  Company Number: 236267

PATIENT
  Age: 74 Year
  Sex: Male
  Weight: 79.4 kg

DRUGS (2)
  1. LUCENTIS [Suspect]
     Indication: MACULAR DEGENERATION
     Dosage: SINGLE, INTRAVITREAL
     Dates: start: 20070121
  2. AVASTIN [Concomitant]

REACTIONS (2)
  - ARTHRITIS [None]
  - OEDEMA PERIPHERAL [None]
